FAERS Safety Report 8461228-7 (Version None)
Quarter: 2012Q2

REPORT INFORMATION
  Report Type: 
  Country: None (occurrence: None)
  Receive Date: 20120619
  Receipt Date: 20120619
  Transmission Date: 20120825
  Serious: Yes (Other)
  Sender: FDA-Public Use
  Company Number: None

PATIENT
  Age: 43 Year
  Sex: Female

DRUGS (2)
  1. OMEPRAZOLE [Suspect]
     Dosage: 40MG EVERY 2-3 DAYS PO
     Route: 048
  2. OMEPRAZOLE [Suspect]
     Indication: DYSPEPSIA
     Dosage: 40MG EVERY 2-3 DAYS PO
     Route: 048
     Dates: start: 20080601, end: 20120618

REACTIONS (2)
  - DIARRHOEA [None]
  - MUSCULOSKELETAL DISORDER [None]
